FAERS Safety Report 6419778-0 (Version None)
Quarter: 2009Q4

REPORT INFORMATION
  Report Type: 
  Country: None (occurrence: None)
  Receive Date: 20091016
  Receipt Date: 20090603
  Transmission Date: 20100525
  Serious: Yes (Hospitalization)
  Sender: FDA-Public Use
  Company Number: WAES 0906USA01105

PATIENT
  Age: 89 Year
  Sex: Male

DRUGS (1)
  1. TIMOPTIC [Suspect]
     Indication: GLAUCOMA
     Dosage: OPHT
     Route: 047

REACTIONS (1)
  - BRADYCARDIA [None]
